FAERS Safety Report 25545471 (Version 1)
Quarter: 2025Q3

REPORT INFORMATION
  Report Type: Spontaneous
  Country: EU (occurrence: EU)
  Receive Date: 20250711
  Receipt Date: 20250711
  Transmission Date: 20251020
  Serious: Yes (Congenital Anomaly, Other)
  Sender: BRISTOL-MYERS SQUIBB COMPANY
  Company Number: EU-BRISTOL-MYERS SQUIBB COMPANY-2025-096382

PATIENT
  Age: 62 Year
  Sex: Male

DRUGS (2)
  1. NIVOLUMAB [Suspect]
     Active Substance: NIVOLUMAB
     Indication: Pleural mesothelioma
  2. NELVUTAMIG [Suspect]
     Active Substance: NELVUTAMIG
     Indication: Pleural mesothelioma

REACTIONS (4)
  - Respiratory failure [Unknown]
  - Malignant neoplasm progression [Unknown]
  - Impaired gastric emptying [Unknown]
  - Metastases to lymph nodes [Unknown]
